FAERS Safety Report 12217878 (Version 1)
Quarter: 2016Q1

REPORT INFORMATION
  Report Type: Spontaneous
  Country: US (occurrence: None)
  Receive Date: 20160328
  Receipt Date: 20160328
  Transmission Date: 20160526
  Serious: No
  Sender: FDA-Public Use
  Company Number: None

PATIENT
  Age: 57 Year
  Sex: Male

DRUGS (20)
  1. PIOGLITAZONE. [Concomitant]
     Active Substance: PIOGLITAZONE
  2. MONTELUKAST [Concomitant]
     Active Substance: MONTELUKAST SODIUM
  3. NORCO [Concomitant]
     Active Substance: ACETAMINOPHEN\HYDROCODONE BITARTRATE
  4. VICTOZA [Concomitant]
     Active Substance: LIRAGLUTIDE
  5. CRESTOR [Concomitant]
     Active Substance: ROSUVASTATIN CALCIUM
  6. DOCUSATE [Concomitant]
     Active Substance: DOCUSATE
  7. ESCITALOPRAM [Suspect]
     Active Substance: ESCITALOPRAM OXALATE
     Indication: ANXIETY
     Route: 048
     Dates: start: 20160323
  8. LATANOPROST. [Concomitant]
     Active Substance: LATANOPROST
  9. BACLOFEN. [Concomitant]
     Active Substance: BACLOFEN
  10. ADVAIR HFA [Concomitant]
     Active Substance: FLUTICASONE PROPIONATE\SALMETEROL XINAFOATE
  11. LEVEMIR [Concomitant]
     Active Substance: INSULIN DETEMIR
  12. COREG [Concomitant]
     Active Substance: CARVEDILOL
  13. GABAPENTIN. [Concomitant]
     Active Substance: GABAPENTIN
  14. METFORMIN [Concomitant]
     Active Substance: METFORMIN HYDROCHLORIDE
  15. GLIMEPIRIDE. [Concomitant]
     Active Substance: GLIMEPIRIDE
  16. JANUVIA [Concomitant]
     Active Substance: SITAGLIPTIN PHOSPHATE
  17. FLUTICASONE [Concomitant]
     Active Substance: FLUTICASONE\FLUTICASONE PROPIONATE
  18. FUROSEMIDE. [Concomitant]
     Active Substance: FUROSEMIDE
  19. INVOKANA [Concomitant]
     Active Substance: CANAGLIFLOZIN
  20. TIZANIDINE. [Concomitant]
     Active Substance: TIZANIDINE

REACTIONS (1)
  - Nightmare [None]

NARRATIVE: CASE EVENT DATE: 20160327
